FAERS Safety Report 9100265 (Version 2)
Quarter: 2013Q1

REPORT INFORMATION
  Report Type: Report from Study
  Country: CA (occurrence: CA)
  Receive Date: 20130215
  Receipt Date: 20130311
  Transmission Date: 20140127
  Serious: Yes (Death)
  Sender: FDA-Public Use
  Company Number: CA-ACTELION-A-US2013-79130

PATIENT
  Age: 59 Year
  Sex: Female

DRUGS (2)
  1. TRACLEER [Suspect]
     Indication: PULMONARY ARTERIAL HYPERTENSION
     Dosage: UNK
     Route: 048
     Dates: start: 201101, end: 20121105
  2. CYCLOPHOSPHAMIDE [Concomitant]

REACTIONS (2)
  - Right ventricular failure [Fatal]
  - Interstitial lung disease [Fatal]
